FAERS Safety Report 9523464 (Version 1)
Quarter: 2013Q3

REPORT INFORMATION
  Report Type: Spontaneous
  Country: PL (occurrence: PL)
  Receive Date: 20130913
  Receipt Date: 20130913
  Transmission Date: 20140515
  Serious: Yes (Other)
  Sender: FDA-Public Use
  Company Number: PHHY2013PL096717

PATIENT
  Sex: Female

DRUGS (3)
  1. PREDNISONE [Suspect]
  2. AZATHIOPRINE [Suspect]
  3. CICLOSPORIN [Suspect]

REACTIONS (4)
  - Squamous cell carcinoma of skin [Unknown]
  - Bowen^s disease [Unknown]
  - Nasal neoplasm [Unknown]
  - Skin ulcer [Unknown]
